FAERS Safety Report 6016449-X (Version None)
Quarter: 2008Q4

REPORT INFORMATION
  Report Type: 
  Country: None (occurrence: None)
  Receive Date: 20081218
  Receipt Date: 20081212
  Transmission Date: 20090506
  Serious: Yes (Hospitalization)
  Sender: FDA-Public Use
  Company Number: GXKR2008DE11926

PATIENT
  Age: 41 Year
  Sex: Female

DRUGS (14)
  1. PROMETHAZINE [Suspect]
     Dosage: SEE IMAGE
     Route: 048
     Dates: start: 20060101, end: 20080818
  2. PROMETHAZINE [Suspect]
     Dosage: SEE IMAGE
     Route: 048
     Dates: start: 20080819, end: 20080820
  3. PROMETHAZINE [Suspect]
     Dosage: SEE IMAGE
     Route: 048
     Dates: start: 20080821, end: 20080821
  4. PROMETHAZINE [Suspect]
     Dosage: SEE IMAGE
     Route: 048
     Dates: start: 20080822, end: 20080823
  5. PROMETHAZINE [Suspect]
     Dosage: SEE IMAGE
     Route: 048
     Dates: start: 20080824, end: 20080824
  6. PROMETHAZINE [Suspect]
     Dosage: SEE IMAGE
     Route: 048
     Dates: start: 20080825, end: 20080902
  7. PROMETHAZINE [Suspect]
     Dosage: SEE IMAGE
     Route: 048
     Dates: start: 20080903
  8. RISPERDAL [Suspect]
     Dosage: 2 MG, QD, ORAL; 1 MG, QD, ORAL
     Route: 048
     Dates: start: 20060101, end: 20080731
  9. RISPERDAL [Suspect]
     Dosage: 2 MG, QD, ORAL; 1 MG, QD, ORAL
     Route: 048
     Dates: start: 20080801, end: 20080804
  10. TIAPRIDEX (TIAPRIDE HYDROCHLORIDE) [Suspect]
     Dosage: 500 MG, QD, ORAL; 400 MG, QD, ORAL; 300 MG, QD, ORAL; 200 MG, QD, ORAL; 100 MG, QD, ORAL
     Route: 048
     Dates: start: 20060101, end: 20080729
  11. TIAPRIDEX (TIAPRIDE HYDROCHLORIDE) [Suspect]
     Dosage: 500 MG, QD, ORAL; 400 MG, QD, ORAL; 300 MG, QD, ORAL; 200 MG, QD, ORAL; 100 MG, QD, ORAL
     Route: 048
     Dates: start: 20080730, end: 20080730
  12. TIAPRIDEX (TIAPRIDE HYDROCHLORIDE) [Suspect]
     Dosage: 500 MG, QD, ORAL; 400 MG, QD, ORAL; 300 MG, QD, ORAL; 200 MG, QD, ORAL; 100 MG, QD, ORAL
     Route: 048
     Dates: start: 20080731, end: 20080731
  13. TIAPRIDEX (TIAPRIDE HYDROCHLORIDE) [Suspect]
     Dosage: 500 MG, QD, ORAL; 400 MG, QD, ORAL; 300 MG, QD, ORAL; 200 MG, QD, ORAL; 100 MG, QD, ORAL
     Route: 048
     Dates: start: 20080801, end: 20080803
  14. TIAPRIDEX (TIAPRIDE HYDROCHLORIDE) [Suspect]
     Dosage: 500 MG, QD, ORAL; 400 MG, QD, ORAL; 300 MG, QD, ORAL; 200 MG, QD, ORAL; 100 MG, QD, ORAL
     Route: 048
     Dates: start: 20080804, end: 20080806

REACTIONS (4)
  - DRUG INEFFECTIVE [None]
  - DRUG INTERACTION [None]
  - DYSKINESIA [None]
  - PLEUROTHOTONUS [None]
